FAERS Safety Report 5353696-4 (Version None)
Quarter: 2007Q2

REPORT INFORMATION
  Report Type: 
  Country: None (occurrence: None)
  Receive Date: 20070612
  Receipt Date: 20070601
  Transmission Date: 20071010
  Serious: Yes (Hospitalization)
  Sender: FDA-Public Use
  Company Number: US-AMGEN-STX227553

PATIENT
  Sex: Female

DRUGS (2)
  1. ENBREL [Suspect]
     Indication: RHEUMATOID ARTHRITIS
     Route: 058
     Dates: start: 20040324, end: 20060901
  2. ENBREL [Suspect]
     Indication: PSORIASIS

REACTIONS (2)
  - ABDOMINAL OPERATION [None]
  - DRUG INEFFECTIVE [None]
